FAERS Safety Report 4527850-5 (Version None)
Quarter: 2004Q4

REPORT INFORMATION
  Report Type: 
  Country: None (occurrence: None)
  Receive Date: 20041123
  Receipt Date: 20040729
  Transmission Date: 20050328
  Serious: Yes (Hospitalization)
  Sender: FDA-Public Use
  Company Number: ATO-04-0708

PATIENT
  Age: 61 Year
  Sex: Female
  Weight: 71.6683 kg

DRUGS (6)
  1. TRISENOX [Suspect]
     Indication: MULTIPLE MYELOMA
     Dosage: 18 MG, BIW, IVI
     Dates: start: 20040503, end: 20040506
  2. ASCORBIC ACID [Suspect]
     Indication: MULTIPLE MYELOMA
     Dosage: 1 GM, QD, IVI
     Dates: end: 20040506
  3. MELPHALAN [Suspect]
     Indication: MULTIPLE MYELOMA
     Dosage: 8 MG ALT WITH 6 MG (QOD), ORAL
     Route: 048
     Dates: start: 20040419, end: 20040422
  4. ARANESP [Concomitant]
  5. ALOXI [Concomitant]
  6. ZOMETA [Concomitant]

REACTIONS (1)
  - PANCREATITIS [None]
